FAERS Safety Report 8715203 (Version 2)
Quarter: 2012Q4

REPORT INFORMATION
  Report Type: 
  Country: AT (occurrence: AT)
  Receive Date: 20120809
  Receipt Date: 20120905
  Transmission Date: 20130627
  Serious: Yes (Death, Life-Threatening)
  Sender: FDA-Public Use
  Company Number: AT-PFIZER INC-2012192907

PATIENT
  Age: 72 Year
  Sex: Male
  Weight: 124 kg

DRUGS (9)
  1. PANTOPRAZOLE [Suspect]
     Indication: ULCER
     Dosage: 40 mg, 2x/day
     Route: 042
     Dates: start: 20120417, end: 20120425
  2. NOVALGIN [Suspect]
     Indication: PAIN
     Dosage: 1 g, 3x/day
     Route: 042
     Dates: start: 20120717, end: 20120719
  3. MEROPENEM [Suspect]
     Indication: PANCREATITIS
     Dosage: 1 g, 4x/day
     Dates: start: 20120718, end: 20120724
  4. DIPIDOLOR [Concomitant]
     Dosage: 30 mg (7.5 mg,1 in 6 hr)
     Route: 042
     Dates: start: 20120717, end: 20120720
  5. LOVENOX [Concomitant]
     Dosage: 20 mg, UNK
     Route: 058
     Dates: start: 20120717, end: 20120723
  6. ACTRAPID [Concomitant]
     Dosage: 50 IU, daily
     Dates: start: 20120717
  7. RATIOGRASTIM [Concomitant]
     Dosage: 1 DF, 1x/day
     Dates: start: 20120720
  8. DIFLUCAN [Concomitant]
     Dosage: 400 mg, 1x/day
     Route: 042
     Dates: start: 20120721, end: 20120725
  9. RELISTOR [Concomitant]
     Dosage: 12 mg, 1x/day
     Route: 058

REACTIONS (4)
  - Septic shock [Fatal]
  - Multi-organ failure [Fatal]
  - Agranulocytosis [Not Recovered/Not Resolved]
  - Thrombocytopenia [Not Recovered/Not Resolved]
